FAERS Safety Report 7971782-7 (Version None)
Quarter: 2011Q4

REPORT INFORMATION
  Report Type: 
  Country: None (occurrence: None)
  Receive Date: 20111212
  Receipt Date: 20111208
  Transmission Date: 20120403
  Serious: Yes (Other)
  Sender: FDA-Public Use
  Company Number: NL-GENZYME-CLOF-1001934

PATIENT
  Sex: Male
  Weight: 66 kg

DRUGS (31)
  1. VANCOMYCIN [Concomitant]
     Dosage: 2000 MG, UNK
     Route: 042
     Dates: start: 20111121, end: 20111128
  2. EVOLTRA [Suspect]
     Indication: ACUTE LEUKAEMIA
     Dosage: 18 MG, UNK
     Route: 042
     Dates: start: 20111102, end: 20111106
  3. CASPOFUNGIN ACETATE [Concomitant]
     Indication: PRODUCT USED FOR UNKNOWN INDICATION
     Dosage: 50 MG, UNK
     Route: 042
     Dates: start: 20111128
  4. FUROSEMIDE [Concomitant]
     Dosage: 20 MG, UNK
     Route: 051
     Dates: start: 20111118, end: 20111118
  5. FUROSEMIDE [Concomitant]
     Dosage: 20 MG, UNK
     Route: 051
     Dates: start: 20111127, end: 20111127
  6. PREDNISOLONE [Concomitant]
     Dosage: 25 MG, UNK
     Route: 051
     Dates: start: 20111127, end: 20111127
  7. VANCOMYCIN [Concomitant]
     Dosage: 2000 MG, UNK
     Route: 042
     Dates: start: 20111110, end: 20111112
  8. CYTARABINE [Suspect]
     Indication: ACUTE LEUKAEMIA
     Dosage: 360 MG, UNK
     Route: 042
     Dates: start: 20111102, end: 20111108
  9. CASPOFUNGIN ACETATE [Concomitant]
     Dosage: 70 MG, UNK
     Route: 042
     Dates: start: 20111128, end: 20111128
  10. FUROSEMIDE [Concomitant]
     Indication: PRODUCT USED FOR UNKNOWN INDICATION
     Dosage: 20 MG, UNK
     Route: 051
     Dates: start: 20111111, end: 20111111
  11. ITRACONAZOLE [Concomitant]
     Dosage: 200 MG, UNK
     Route: 048
     Dates: start: 20111104, end: 20111110
  12. VORICONAZOLE [Concomitant]
     Dosage: 400 MG, UNK
     Route: 048
     Dates: start: 20111123, end: 20111125
  13. PYRIDOXINE HCL [Concomitant]
     Indication: PRODUCT USED FOR UNKNOWN INDICATION
     Dosage: 20 MG, UNK
     Route: 048
     Dates: start: 20111117
  14. CLEMASTINE FUMARATE [Concomitant]
     Indication: PRODUCT USED FOR UNKNOWN INDICATION
     Dosage: 1 MG, UNK
     Route: 048
     Dates: start: 20111110, end: 20111118
  15. ITRACONAZOLE [Concomitant]
     Indication: PRODUCT USED FOR UNKNOWN INDICATION
     Dosage: 200 MG, UNK
     Route: 048
     Dates: start: 20111028, end: 20111104
  16. PREDNISOLONE [Concomitant]
     Dosage: 5 MG, UNK
     Route: 048
     Dates: start: 20111108, end: 20111114
  17. VORICONAZOLE [Concomitant]
     Indication: PRODUCT USED FOR UNKNOWN INDICATION
     Dosage: 400 MG, UNK
     Route: 042
     Dates: start: 20111118, end: 20111123
  18. ESOMEPRAZOLE SODIUM [Concomitant]
     Indication: PRODUCT USED FOR UNKNOWN INDICATION
     Dosage: 40 MG, UNK
     Route: 048
     Dates: start: 20111104
  19. ISONIAZID [Concomitant]
     Indication: PRODUCT USED FOR UNKNOWN INDICATION
     Dosage: 300 MG, UNK
     Route: 048
     Dates: start: 20111101
  20. CLEMASTINE FUMARATE [Concomitant]
     Dosage: 2 MG, UNK
     Route: 051
     Dates: start: 20111127, end: 20111127
  21. VANCOMYCIN [Concomitant]
     Indication: PRODUCT USED FOR UNKNOWN INDICATION
     Dosage: 2000 MG, UNK
     Route: 042
     Dates: start: 20111102, end: 20111110
  22. IDARUBICIN HCL [Suspect]
     Indication: ACUTE LEUKAEMIA
     Dosage: 22 MG, UNK
     Route: 042
     Dates: start: 20111102, end: 20111104
  23. NORFLOXACIN [Concomitant]
     Indication: PRODUCT USED FOR UNKNOWN INDICATION
     Dosage: 800 MG, UNK
     Route: 048
     Dates: start: 20111028
  24. COTRIM [Concomitant]
     Indication: PRODUCT USED FOR UNKNOWN INDICATION
     Dosage: 80/400 MG
     Route: 048
     Dates: start: 20111101
  25. VALACICLOVIR [Concomitant]
     Indication: PRODUCT USED FOR UNKNOWN INDICATION
     Dosage: 1000 MG, UNK
     Route: 048
     Dates: start: 20111101
  26. ALLOPURINOL [Concomitant]
     Indication: PRODUCT USED FOR UNKNOWN INDICATION
     Dosage: 300 MG, UNK
     Route: 048
     Dates: start: 20111028, end: 20111107
  27. AMPHOTERICIN B [Concomitant]
     Indication: PRODUCT USED FOR UNKNOWN INDICATION
     Dosage: 100 MG/ML, UNK
     Route: 048
     Dates: start: 20111028, end: 20111125
  28. PREDNISOLONE [Concomitant]
     Indication: PRODUCT USED FOR UNKNOWN INDICATION
     Dosage: 20 MG, UNK
     Route: 048
     Dates: start: 20111109, end: 20111114
  29. ESOMEPRAZOLE SODIUM [Concomitant]
     Dosage: 40 MG, UNK
     Route: 042
     Dates: start: 20111130, end: 20111130
  30. AMPHOTERICIN B [Concomitant]
     Indication: PRODUCT USED FOR UNKNOWN INDICATION
     Dosage: 100 MG, UNK
     Route: 042
     Dates: start: 20111125, end: 20111128
  31. CEFTAZIDIME [Concomitant]
     Indication: PRODUCT USED FOR UNKNOWN INDICATION
     Dosage: 2000 MG, UNK
     Route: 042
     Dates: start: 20111029, end: 20111109

REACTIONS (1)
  - DISSEMINATED INTRAVASCULAR COAGULATION [None]
